FAERS Safety Report 17258807 (Version 2)
Quarter: 2020Q1

REPORT INFORMATION
  Report Type: Other
  Country: US (occurrence: US)
  Receive Date: 20200110
  Receipt Date: 20200323
  Transmission Date: 20200409
  Serious: No
  Sender: FDA-Public Use
  Company Number: US-AMAG PHARMACEUTICALS, INC.-AMAG201906550

PATIENT
  Age: 21 Year
  Sex: Female

DRUGS (1)
  1. MAKENA [Suspect]
     Active Substance: HYDROXYPROGESTERONE CAPROATE
     Indication: PREMATURE DELIVERY
     Dosage: 250MG/ML, WEEKLY
     Route: 058
     Dates: start: 20191023

REACTIONS (10)
  - Injection site irritation [Unknown]
  - Injection site pruritus [Unknown]
  - Nodule [Unknown]
  - Erythema [Unknown]
  - Injection site erythema [Unknown]
  - Pain in extremity [Unknown]
  - Limb discomfort [Unknown]
  - Injection site nodule [Unknown]
  - Pruritus [Unknown]
  - Injection site pain [Unknown]

NARRATIVE: CASE EVENT DATE: 20191219
